FAERS Safety Report 21199966 (Version 6)
Quarter: 2023Q1

REPORT INFORMATION
  Report Type: Report from Study
  Country: CA (occurrence: CA)
  Receive Date: 20220811
  Receipt Date: 20230302
  Transmission Date: 20230417
  Serious: Yes (Other)
  Sender: FDA-Public Use
  Company Number: CA-TAKEDA-2022TUS028895

PATIENT
  Age: 64 Year
  Sex: Female

DRUGS (5)
  1. VEDOLIZUMAB [Suspect]
     Active Substance: VEDOLIZUMAB
     Indication: Colitis ulcerative
     Dosage: 300 MILLIGRAM
     Route: 042
     Dates: start: 20220406
  2. VEDOLIZUMAB [Suspect]
     Active Substance: VEDOLIZUMAB
     Dosage: 300 MILLIGRAM
     Route: 042
  3. VEDOLIZUMAB [Suspect]
     Active Substance: VEDOLIZUMAB
     Dosage: 300 MILLIGRAM
     Route: 042
  4. VEDOLIZUMAB [Suspect]
     Active Substance: VEDOLIZUMAB
     Indication: Colitis ulcerative
     Dosage: 108 MILLIGRAM
     Route: 058
     Dates: start: 20221103
  5. IMURAN [Concomitant]
     Active Substance: AZATHIOPRINE
     Dosage: UNK
     Dates: start: 20220103

REACTIONS (12)
  - Colitis ulcerative [Unknown]
  - COVID-19 [Unknown]
  - Dyschezia [Unknown]
  - Frequent bowel movements [Unknown]
  - Abnormal faeces [Unknown]
  - Colitis [Recovered/Resolved]
  - Abdominal pain upper [Unknown]
  - Injection site pain [Unknown]
  - Drug ineffective [Unknown]
  - Anal haemorrhage [Unknown]
  - Abdominal pain [Unknown]
  - Anal fissure [Unknown]
